FAERS Safety Report 24189974 (Version 6)
Quarter: 2025Q1

REPORT INFORMATION
  Report Type: Spontaneous
  Country: IN (occurrence: IN)
  Receive Date: 20240808
  Receipt Date: 20250204
  Transmission Date: 20250409
  Serious: Yes (Other)
  Sender: PFIZER
  Company Number: IN-PFIZER INC-PV202400101991

PATIENT
  Age: 52 Year
  Sex: Male

DRUGS (1)
  1. CRIZOTINIB [Suspect]
     Active Substance: CRIZOTINIB
     Indication: Non-small cell lung cancer metastatic
     Dosage: 250 MG, 2X/DAY
     Route: 048
     Dates: start: 202402

REACTIONS (12)
  - Hydrocele [Unknown]
  - Blood urea increased [Unknown]
  - Blood creatinine increased [Unknown]
  - Blood albumin decreased [Unknown]
  - Haemoglobin decreased [Unknown]
  - Blood glucose increased [Unknown]
  - Oropharyngeal pain [Unknown]
  - Swelling [Unknown]
  - Upper respiratory tract infection [Unknown]
  - Peripheral swelling [Unknown]
  - Paraesthesia [Unknown]
  - Single functional kidney [Unknown]

NARRATIVE: CASE EVENT DATE: 20240101
